FAERS Safety Report 5092322-9 (Version None)
Quarter: 2006Q3

REPORT INFORMATION
  Report Type: 
  Country: None (occurrence: None)
  Receive Date: 20060727
  Receipt Date: 20060623
  Transmission Date: 20061208
  Serious: Yes (Other)
  Sender: FDA-Public Use
  Company Number: 2006080928

PATIENT
  Age: 50 Year
  Sex: Male
  Weight: 127.0072 kg

DRUGS (8)
  1. LYRICA [Suspect]
     Indication: DIABETIC NEUROPATHY
     Dosage: 150 MG (150 MG, 1 IN 1 D), ORAL
     Route: 048
     Dates: start: 20060501
  2. DIOVAN [Concomitant]
  3. COREG [Concomitant]
  4. PLAVIX [Concomitant]
  5. EFFEXOR [Concomitant]
  6. LANTUS [Concomitant]
  7. HUMALOG [Concomitant]
  8. AMBIEN [Concomitant]

REACTIONS (4)
  - DRUG ADMINISTRATION ERROR [None]
  - DRUG INEFFECTIVE [None]
  - HYPOAESTHESIA [None]
  - OEDEMA PERIPHERAL [None]
